FAERS Safety Report 17187263 (Version 1)
Quarter: 2019Q4

REPORT INFORMATION
  Report Type: Report from Study
  Country: US (occurrence: US)
  Receive Date: 20191220
  Receipt Date: 20191220
  Transmission Date: 20200122
  Serious: Yes (Hospitalization)
  Sender: FDA-Public Use
  Company Number: US-ACTELION-A-NJ2018-166860

PATIENT
  Age: 64 Year
  Sex: Female

DRUGS (3)
  1. OPSUMIT [Suspect]
     Active Substance: MACITENTAN
     Indication: PULMONARY ARTERIAL HYPERTENSION
     Dosage: 10 MG, QD
     Route: 048
     Dates: start: 201710
  2. TADALAFIL. [Concomitant]
     Active Substance: TADALAFIL
  3. LASIX [Concomitant]
     Active Substance: FUROSEMIDE

REACTIONS (7)
  - Peripheral swelling [Unknown]
  - Pneumonia [Not Recovered/Not Resolved]
  - Heart rate increased [Unknown]
  - Headache [Unknown]
  - Nasal disorder [Unknown]
  - Paranasal sinus discomfort [Unknown]
  - Breast pain [Unknown]

NARRATIVE: CASE EVENT DATE: 20181001
